FAERS Safety Report 18578279 (Version 1)
Quarter: 2020Q4

REPORT INFORMATION
  Report Type: Spontaneous
  Country: US (occurrence: US)
  Receive Date: 20201204
  Receipt Date: 20201204
  Transmission Date: 20210114
  Serious: Yes (Hospitalization, Other)
  Sender: FDA-Public Use
  Company Number: US-DRREDDYS-USA/USA/20/0129799

PATIENT
  Age: 75 Year
  Sex: Female

DRUGS (1)
  1. AZACITIDINE. [Suspect]
     Active Substance: AZACITIDINE
     Indication: ACUTE MYELOID LEUKAEMIA

REACTIONS (9)
  - Tachycardia [Unknown]
  - Pneumonitis [Unknown]
  - Lung consolidation [Unknown]
  - Hypoxia [Unknown]
  - Haemoptysis [Unknown]
  - Sepsis [Unknown]
  - Pancytopenia [Unknown]
  - Hypotension [Unknown]
  - Pleural effusion [Recovering/Resolving]
